FAERS Safety Report 5843681-8 (Version None)
Quarter: 2008Q3

REPORT INFORMATION
  Report Type: 
  Country: None (occurrence: None)
  Receive Date: 20080812
  Receipt Date: 20080812
  Transmission Date: 20090109
  Serious: Yes (Other)
  Sender: FDA-Public Use
  Company Number: None

PATIENT
  Age: 36 Year
  Sex: Female
  Weight: 75.2971 kg

DRUGS (2)
  1. PITOCIN [Suspect]
     Indication: LABOUR ONSET DELAYED
     Dosage: 20 UNIS IN 500 ML LR 33 ML/HR IV DRIP
     Route: 041
     Dates: start: 20080811, end: 20080811
  2. PITOCIN [Suspect]
     Indication: PREMATURE RUPTURE OF MEMBRANES
     Dosage: 20 UNIS IN 500 ML LR 33 ML/HR IV DRIP
     Route: 041
     Dates: start: 20080811, end: 20080811

REACTIONS (2)
  - DRUG INEFFECTIVE [None]
  - PHARMACEUTICAL PRODUCT COMPLAINT [None]
